FAERS Safety Report 8071412-2 (Version None)
Quarter: 2012Q1

REPORT INFORMATION
  Report Type: 
  Country: None (occurrence: None)
  Receive Date: 20120125
  Receipt Date: 20120116
  Transmission Date: 20120608
  Serious: Yes (Other)
  Sender: FDA-Public Use
  Company Number: US-ELI_LILLY_AND_COMPANY-US201201002936

PATIENT
  Sex: Female

DRUGS (2)
  1. HUMALOG [Suspect]
     Indication: DIABETES MELLITUS
     Dosage: 40 U, QID
  2. LANTUS [Concomitant]
     Dosage: UNK

REACTIONS (5)
  - PAIN [None]
  - DRUG INEFFECTIVE [None]
  - KNEE ARTHROPLASTY [None]
  - BLOOD GLUCOSE INCREASED [None]
  - HEADACHE [None]
